FAERS Safety Report 9069342 (Version 3)
Quarter: 2013Q3

REPORT INFORMATION
  Report Type: Report from Study
  Country: BE (occurrence: BE)
  Receive Date: 20130215
  Receipt Date: 20130816
  Transmission Date: 20140515
  Serious: Yes (Hospitalization)
  Sender: FDA-Public Use
  Company Number: BE-ABBOTT-13P-013-1040929-00

PATIENT
  Age: 57 Year
  Sex: Female
  Weight: 64 kg

DRUGS (26)
  1. HUMIRA [Suspect]
     Indication: CROHN^S DISEASE
     Route: 058
     Dates: start: 20080506
  2. TRAZOLAN [Concomitant]
     Indication: INSOMNIA
     Dates: start: 2004, end: 20100108
  3. TRAZOLAN [Concomitant]
     Dates: start: 2011
  4. MYOLASTAN [Concomitant]
     Indication: ANXIETY
     Dates: start: 2005, end: 201101
  5. MYOLASTAN [Concomitant]
     Indication: INSOMNIA
     Dates: start: 20110525, end: 2012
  6. ZOLPIDEM [Concomitant]
     Indication: ANXIETY
     Dates: start: 2007
  7. TAVANIC [Concomitant]
     Indication: URINARY TRACT INFECTION
  8. LYSANXIA [Concomitant]
     Indication: ANXIETY
     Dates: start: 2008, end: 2011
  9. LYSANXIA [Concomitant]
     Dates: start: 2011
  10. CYMBALTA [Concomitant]
     Indication: ANXIETY
     Dates: start: 2008
  11. IMITREX [Concomitant]
     Indication: HEADACHE
     Dates: start: 2009
  12. VOLTAREN [Concomitant]
     Indication: RADIUS FRACTURE
     Dates: start: 20090402
  13. SEROQUEL [Concomitant]
     Indication: PSYCHOTIC DISORDER
  14. DAFALGAN KINDER [Concomitant]
     Indication: PAIN
     Dates: start: 2012, end: 2013
  15. CYANOCOBALAMIN [Concomitant]
     Indication: VITAMIN B12 DEFICIENCY
     Dates: start: 2010, end: 2013
  16. DEPAKINE CHRONO [Concomitant]
     Indication: MIGRAINE
     Dates: start: 20110525
  17. DOVOBET [Concomitant]
     Indication: PSORIASIS
     Route: 061
     Dates: start: 2011, end: 2013
  18. STILNOCT [Concomitant]
     Indication: INSOMNIA
     Dates: start: 20110525
  19. PANADOL PLUS [Concomitant]
     Indication: PAIN
     Dates: start: 20110525
  20. INDERAL [Concomitant]
     Indication: PROPHYLAXIS
     Dates: start: 2011, end: 2012
  21. FURADANTINE [Concomitant]
     Indication: DYSURIA
     Dates: start: 2012, end: 2012
  22. MONURIL [Concomitant]
     Indication: CYSTITIS
     Dates: start: 2012, end: 201212
  23. CRANBERRY AKUT [Concomitant]
     Indication: PROPHYLAXIS
     Dates: start: 20120613
  24. PROPANOLOL HYDROCHLORIDE [Concomitant]
     Indication: PROPHYLAXIS
     Dates: start: 2012
  25. ENTEROL [Concomitant]
     Indication: DIARRHOEA
     Dosage: 1 TABLET
     Dates: start: 20110525
  26. BICLAR [Concomitant]
     Indication: INFECTION
     Dates: start: 201203, end: 201203

REACTIONS (1)
  - Subileus [Recovered/Resolved]
